FAERS Safety Report 25934668 (Version 1)
Quarter: 2025Q4

REPORT INFORMATION
  Report Type: Spontaneous
  Country: JP (occurrence: JP)
  Receive Date: 20251017
  Receipt Date: 20251017
  Transmission Date: 20260118
  Serious: Yes (Other)
  Sender: AMGEN
  Company Number: JP-AMGEN-JPNSP2025202124

PATIENT
  Age: 72 Year
  Sex: Female
  Weight: 46.7 kg

DRUGS (14)
  1. PEGFILGRASTIM [Suspect]
     Active Substance: PEGFILGRASTIM
     Indication: Prophylaxis
     Dosage: UNK UNK, AFTER CHEMO, ON DAY THREE
     Route: 065
  2. PEGFILGRASTIM [Suspect]
     Active Substance: PEGFILGRASTIM
     Dosage: UNK UNK, AFTER CHEMO, ON DAY FOUR
     Route: 065
  3. EPIRUBICIN [Suspect]
     Active Substance: EPIRUBICIN
     Indication: Invasive lobular breast carcinoma
     Dosage: 85 MILLIGRAM/SQ. METER
     Route: 065
  4. EPIRUBICIN [Suspect]
     Active Substance: EPIRUBICIN
     Dosage: 78 MILLIGRAM/SQ. METER
     Route: 065
  5. EPIRUBICIN [Suspect]
     Active Substance: EPIRUBICIN
     Dosage: 85 MILLIGRAM/SQ. METER
     Route: 065
  6. CYCLOPHOSPHAMIDE [Suspect]
     Active Substance: CYCLOPHOSPHAMIDE
     Indication: Invasive lobular breast carcinoma
     Dosage: 567 MILLIGRAM/SQ. METER
     Route: 065
  7. CYCLOPHOSPHAMIDE [Suspect]
     Active Substance: CYCLOPHOSPHAMIDE
     Dosage: 511 MILLIGRAM/SQ. METER
     Route: 065
  8. CYCLOPHOSPHAMIDE [Suspect]
     Active Substance: CYCLOPHOSPHAMIDE
     Dosage: 567 MILLIGRAM/SQ. METER
     Route: 065
  9. PALONOSETRON HYDROCHLORIDE [Concomitant]
     Active Substance: PALONOSETRON HYDROCHLORIDE
     Indication: Product used for unknown indication
     Dosage: 0.75 MILLIGRAM, ON DAY ONE
     Route: 040
  10. DEXAMETHASONE [Concomitant]
     Active Substance: DEXAMETHASONE
     Indication: Product used for unknown indication
     Dosage: 9.9 MILLIGRAM
     Route: 040
  11. DEXAMETHASONE [Concomitant]
     Active Substance: DEXAMETHASONE
     Dosage: 8 MILLIGRAM, AFTER BREAKFAST AND LUNCH ON DAYS TWO TO FOUR
     Route: 040
  12. APREPITANT [Concomitant]
     Active Substance: APREPITANT
     Indication: Product used for unknown indication
     Dosage: 125 MILLIGRAM (ON DAY ONE)
     Route: 048
  13. APREPITANT [Concomitant]
     Active Substance: APREPITANT
     Dosage: 80 MILLIGRAM (ON DAY TWO)
     Route: 048
  14. APREPITANT [Concomitant]
     Active Substance: APREPITANT
     Dosage: 80 MILLIGRAM (ON DAY THREE)
     Route: 048

REACTIONS (6)
  - White blood cell count decreased [Unknown]
  - Neutrophil count decreased [Unknown]
  - Monocyte count increased [Unknown]
  - Constipation [Unknown]
  - Pharyngitis [Recovering/Resolving]
  - Fatigue [Unknown]
